FAERS Safety Report 4911714-9 (Version None)
Quarter: 2006Q1

REPORT INFORMATION
  Report Type: 
  Country: None (occurrence: None)
  Receive Date: 20060213
  Receipt Date: 20060110
  Transmission Date: 20060701
  Serious: Yes (Hospitalization, Disabling, Other)
  Sender: FDA-Public Use
  Company Number: 9914089

PATIENT
  Sex: Female

DRUGS (8)
  1. DIFLUCAN [Suspect]
     Indication: ORAL FUNGAL INFECTION
     Dosage: DAILY, ORAL
     Route: 048
     Dates: start: 19930101, end: 19990201
  2. DIFLUCAN [Suspect]
     Indication: SYSTEMIC MYCOSIS
     Dosage: DAILY, ORAL
     Route: 048
     Dates: start: 19930101, end: 19990201
  3. ZANTAC [Concomitant]
  4. TYLENOL #4 (CODEINE PHOSPHATE, PARACETAMOL) [Concomitant]
  5. VITAMINS (VITAMINS) [Concomitant]
  6. VALIUM [Concomitant]
  7. POTASSIUM (POTASSIUM) [Concomitant]
  8. VITAMIN B12 [Concomitant]

REACTIONS (35)
  - ABDOMINAL PAIN [None]
  - ANOREXIA [None]
  - ASTHENIA [None]
  - BURNING SENSATION [None]
  - CARDIAC DISORDER [None]
  - CHEST PAIN [None]
  - DEHYDRATION [None]
  - DISEASE RECURRENCE [None]
  - DIZZINESS [None]
  - DYSPEPSIA [None]
  - EYE IRRITATION [None]
  - EYE PRURITUS [None]
  - EYE SWELLING [None]
  - FATIGUE [None]
  - FEELING ABNORMAL [None]
  - GASTRIC DISORDER [None]
  - GASTRITIS [None]
  - GASTROENTERITIS [None]
  - HEADACHE [None]
  - HEART RATE INCREASED [None]
  - HYPOKALAEMIA [None]
  - LIVER DISORDER [None]
  - MUSCULAR WEAKNESS [None]
  - MUSCULOSKELETAL CHEST PAIN [None]
  - MYALGIA [None]
  - NAUSEA [None]
  - OESOPHAGEAL SPASM [None]
  - ORAL FUNGAL INFECTION [None]
  - PALPITATIONS [None]
  - PANCREATITIS [None]
  - PRURITUS GENERALISED [None]
  - SYSTEMIC MYCOSIS [None]
  - THROAT IRRITATION [None]
  - VOMITING [None]
  - WEIGHT DECREASED [None]
